FAERS Safety Report 8285272-8 (Version None)
Quarter: 2012Q2

REPORT INFORMATION
  Report Type: 
  Country: None (occurrence: None)
  Receive Date: 20120413
  Receipt Date: 20120410
  Transmission Date: 20120825
  Serious: Yes (Death)
  Sender: FDA-Public Use
  Company Number: ZA-ABBOTT-12P-143-0923842-00

PATIENT
  Sex: Female

DRUGS (5)
  1. LAMIVUDINE [Concomitant]
     Indication: HIV INFECTION
     Route: 048
     Dates: start: 20111007
  2. ABACAVIR [Concomitant]
     Indication: HIV INFECTION
     Route: 048
     Dates: start: 20111007
  3. KALETRA [Suspect]
     Indication: HIV INFECTION
     Dosage: DAILY DOSE: 800/200 MG;  UNIT DOSE: 200/50 MG
     Route: 048
     Dates: start: 20111007
  4. COTRIM [Concomitant]
     Indication: PROPHYLAXIS
     Route: 048
     Dates: start: 20111007
  5. FOLIC ACID [Concomitant]
     Indication: VITAMIN SUPPLEMENTATION
     Route: 048
     Dates: start: 20111007

REACTIONS (3)
  - PAIN [None]
  - INFLAMMATION [None]
  - COUGH [None]
